FAERS Safety Report 7472352-X (Version None)
Quarter: 2011Q2

REPORT INFORMATION
  Report Type: 
  Country: None (occurrence: None)
  Receive Date: 20110511
  Receipt Date: 20110503
  Transmission Date: 20111010
  Serious: Yes (Other)
  Sender: FDA-Public Use
  Company Number: PHFR2011GB02869

PATIENT
  Sex: Male

DRUGS (1)
  1. CLOZARIL [Suspect]
     Indication: SCHIZOPHRENIA
     Route: 048
     Dates: start: 20110324, end: 20110502

REACTIONS (7)
  - DIFFERENTIAL WHITE BLOOD CELL COUNT ABNORMAL [None]
  - CONSTIPATION [None]
  - RED BLOOD CELL SEDIMENTATION RATE INCREASED [None]
  - BODY TEMPERATURE FLUCTUATION [None]
  - WEIGHT DECREASED [None]
  - ABNORMAL FAECES [None]
  - DIARRHOEA [None]
